FAERS Safety Report 5722158-4 (Version None)
Quarter: 2008Q2

REPORT INFORMATION
  Report Type: 
  Country: None (occurrence: None)
  Receive Date: 20080429
  Receipt Date: 20080417
  Transmission Date: 20081010
  Serious: Yes (Other)
  Sender: FDA-Public Use
  Company Number: US-PFIZER INC-2008035959

PATIENT
  Sex: Male

DRUGS (1)
  1. CHANTIX [Suspect]
     Indication: SMOKER

REACTIONS (4)
  - ANXIETY [None]
  - DISORIENTATION [None]
  - DIZZINESS [None]
  - IMPAIRED DRIVING ABILITY [None]
